FAERS Safety Report 5161174-0 (Version None)
Quarter: 2006Q4

REPORT INFORMATION
  Report Type: 
  Country: None (occurrence: None)
  Receive Date: 20061130
  Receipt Date: 20061121
  Transmission Date: 20070319
  Serious: Yes (Other)
  Sender: FDA-Public Use
  Company Number: PHNU2006DE03867

PATIENT
  Age: 64 Year
  Sex: Male

DRUGS (1)
  1. ZOMETA [Suspect]
     Indication: PROSTATE CANCER METASTATIC
     Dosage: 4 MG, ONCE/SINGLE
     Route: 042
     Dates: start: 20061030, end: 20061030

REACTIONS (3)
  - BLOOD ALKALINE PHOSPHATASE INCREASED [None]
  - CONDITION AGGRAVATED [None]
  - PLATELET COUNT DECREASED [None]
